FAERS Safety Report 5927712-2 (Version None)
Quarter: 2008Q4

REPORT INFORMATION
  Report Type: 
  Country: None (occurrence: None)
  Receive Date: 20081020
  Receipt Date: 20030820
  Transmission Date: 20090506
  Serious: Yes (Other)
  Sender: FDA-Public Use
  Company Number: 0310009

PATIENT
  Age: 1 Year
  Sex: Female

DRUGS (8)
  1. ORFADIN [Suspect]
     Indication: TYROSINAEMIA
     Dosage: 10 MG, 2 IN 1 D, ORAL
     Route: 048
     Dates: start: 20030717
  2. NAHC03 (NAHC03) [Concomitant]
  3. CIPRO [Concomitant]
  4. ACTIGALL [Concomitant]
  5. LASIX [Concomitant]
  6. ALDACTONE [Concomitant]
  7. PREVACID [Concomitant]
  8. MAGNESIUM OXIDE (MAGNESIUM OXIDE) [Concomitant]

REACTIONS (6)
  - ABDOMINAL DISTENSION [None]
  - ASCITES [None]
  - EYELID OEDEMA [None]
  - MEDICATION ERROR [None]
  - PERITONITIS BACTERIAL [None]
  - PYREXIA [None]
